FAERS Safety Report 9759325 (Version 1)
Quarter: 2013Q4

REPORT INFORMATION
  Report Type: Spontaneous
  Country: US (occurrence: None)
  Receive Date: 20131216
  Receipt Date: 20131216
  Transmission Date: 20140711
  Serious: Yes (Hospitalization)
  Sender: FDA-Public Use
  Company Number: 163-21880-12041397(0)

PATIENT
  Age: 67 Year
  Sex: Male

DRUGS (1)
  1. REVLIMID (LENAIDOCMIDE) (10 MILLIGRAM, CAPSULES) [Suspect]
     Indication: MYELODYSPLASTIC SYNDROME
     Dosage: 10 MG, DAILY X 21 DAYS / 28 DAY CYCLE, PO?

REACTIONS (2)
  - Pneumonia [None]
  - White blood cell count decreased [None]
